FAERS Safety Report 7141535-0 (Version None)
Quarter: 2010Q4

REPORT INFORMATION
  Report Type: 
  Country: None (occurrence: None)
  Receive Date: 20101207
  Receipt Date: 20101116
  Transmission Date: 20110411
  Serious: Yes (Other)
  Sender: FDA-Public Use
  Company Number: US-PFIZER INC-2010152436

PATIENT
  Age: 37 Year
  Sex: Female
  Weight: 70.295 kg

DRUGS (1)
  1. ADVIL PM [Suspect]
     Dosage: 2 DF, 1X/DAY
     Route: 048
     Dates: start: 20101107, end: 20101109

REACTIONS (6)
  - HYPERSENSITIVITY [None]
  - LOCAL SWELLING [None]
  - OEDEMA PERIPHERAL [None]
  - PRURITUS GENERALISED [None]
  - SWELLING FACE [None]
  - URTICARIA [None]
